FAERS Safety Report 23182557 (Version 2)
Quarter: 2023Q4

REPORT INFORMATION
  Report Type: Spontaneous
  Country: IT (occurrence: IT)
  Receive Date: 20231114
  Receipt Date: 20231121
  Transmission Date: 20240109
  Serious: Yes (Hospitalization, Disabling, Other)
  Sender: FDA-Public Use
  Company Number: IT-PURDUE PHARMA-USA-2023-0305835

PATIENT
  Age: 4 Decade

DRUGS (18)
  1. OXYCODONE HYDROCHLORIDE [Suspect]
     Active Substance: OXYCODONE HYDROCHLORIDE
     Indication: Back pain
     Dosage: 5 MILLIGRAM (5 MG  ? 2/DAY)
     Route: 065
     Dates: start: 202210, end: 2022
  2. OXYCODONE HYDROCHLORIDE [Suspect]
     Active Substance: OXYCODONE HYDROCHLORIDE
     Indication: Back pain
     Dosage: 20 MILLIGRAM (20 MG ? 2/DAY)
     Route: 065
     Dates: start: 2022
  3. OXYCODONE HYDROCHLORIDE [Suspect]
     Active Substance: OXYCODONE HYDROCHLORIDE
     Dosage: 10 MG + 10 MG (DAY 1 OF HOSPITALIZATION)
     Route: 065
     Dates: start: 202302, end: 2023
  4. OXYCODONE HYDROCHLORIDE [Suspect]
     Active Substance: OXYCODONE HYDROCHLORIDE
     Dosage: 10 MG + 10 MG (DAY 2 OF HOSPITALIZATION))
     Route: 065
     Dates: start: 2023, end: 2023
  5. OXYCODONE HYDROCHLORIDE [Suspect]
     Active Substance: OXYCODONE HYDROCHLORIDE
     Dosage: 10 MG + 5 MG (DAY 3 OF HOSPITALIZATION)
     Route: 065
     Dates: start: 2023, end: 2023
  6. OXYCODONE HYDROCHLORIDE [Suspect]
     Active Substance: OXYCODONE HYDROCHLORIDE
     Dosage: 5 MG + 5 MG (DAY 4)
     Route: 065
     Dates: start: 2023, end: 2023
  7. OXYCODONE HYDROCHLORIDE [Suspect]
     Active Substance: OXYCODONE HYDROCHLORIDE
     Dosage: 5 MG (DAY 5 OF HOSPITALIZATION)
     Route: 065
     Dates: start: 2023, end: 2023
  8. OXYCODONE HYDROCHLORIDE [Suspect]
     Active Substance: OXYCODONE HYDROCHLORIDE
     Dosage: OXYCODONE 5 MG + PREGABALIN 75 MG (DAY 6 OF HOSPITALIZATION)
     Route: 065
     Dates: start: 2023
  9. OXYCODONE HYDROCHLORIDE [Suspect]
     Active Substance: OXYCODONE HYDROCHLORIDE
     Dosage: UNK (DOSE DECREASED)
     Route: 065
     Dates: start: 2023
  10. OXYCODONE HYDROCHLORIDE [Suspect]
     Active Substance: OXYCODONE HYDROCHLORIDE
     Dosage: STOP OXYCODONE, PREGABALIN 75 MG + 75 MG DAY 7 OF HOSPITALIZATION (WITHDRAWN)
     Route: 065
     Dates: start: 2023
  11. OXYCODONE HYDROCHLORIDE [Suspect]
     Active Substance: OXYCODONE HYDROCHLORIDE
     Dosage: 40 MILLIGRAM (20 MILLIGRAM BID)
     Route: 065
     Dates: start: 2022
  12. PREGABALIN [Concomitant]
     Active Substance: PREGABALIN
     Indication: Pain
     Dosage: 75 MG (DAY 6)
     Route: 065
  13. PREGABALIN [Concomitant]
     Active Substance: PREGABALIN
     Indication: Back pain
     Dosage: 75 MG + 75 MG (DAY 7-8)
     Route: 065
  14. PREGABALIN [Concomitant]
     Active Substance: PREGABALIN
     Dosage: 75 MG + 150 MG (DAY 9-10)
     Route: 065
  15. PREGABALIN [Concomitant]
     Active Substance: PREGABALIN
     Dosage: 150 MG + 150 MG  (DAY 11-14)
     Route: 065
  16. PREGABALIN [Concomitant]
     Active Substance: PREGABALIN
     Dosage: DAY 7 OF HOSPITALIZATION (STOP OXYCODONE, PREGABALIN 75MG +75 MG)
     Route: 065
  17. CHOLECALCIFEROL [Concomitant]
     Active Substance: CHOLECALCIFEROL
     Indication: Supplementation therapy
     Dosage: OVER THE YEARS
     Route: 065
  18. CHOLECALCIFEROL [Concomitant]
     Active Substance: CHOLECALCIFEROL
     Dosage: DOSAGE AT ADMISSION
     Route: 065

REACTIONS (9)
  - Paradoxical pain [Recovered/Resolved]
  - Hyperaesthesia [Recovered/Resolved]
  - Sitting disability [Recovered/Resolved]
  - Drug ineffective [Unknown]
  - Condition aggravated [Recovered/Resolved]
  - Pain [Recovered/Resolved]
  - Allodynia [Recovered/Resolved]
  - Gait inability [Recovered/Resolved]
  - Loss of personal independence in daily activities [Recovered/Resolved]

NARRATIVE: CASE EVENT DATE: 20220101
